FAERS Safety Report 5781259-5 (Version None)
Quarter: 2008Q2

REPORT INFORMATION
  Report Type: 
  Country: None (occurrence: None)
  Receive Date: 20080623
  Receipt Date: 20080617
  Transmission Date: 20081010
  Serious: Yes (Other)
  Sender: FDA-Public Use
  Company Number: US-RANBAXY-2008US-15034

PATIENT

DRUGS (1)
  1. ISOTRETINOIN [Suspect]
     Indication: DRUG USE FOR UNKNOWN INDICATION
     Dosage: 30 MG, UNK
     Route: 048

REACTIONS (5)
  - ALOPECIA [None]
  - ARTHRALGIA [None]
  - MENSTRUAL DISORDER [None]
  - RECTAL HAEMORRHAGE [None]
  - VISION BLURRED [None]
